FAERS Safety Report 24811739 (Version 1)
Quarter: 2025Q1

REPORT INFORMATION
  Report Type: Spontaneous
  Country: US (occurrence: US)
  Receive Date: 20250106
  Receipt Date: 20250106
  Transmission Date: 20250409
  Serious: Yes (Other)
  Sender: DR REDDYS
  Company Number: US-DRL-USA-LIT/USA/24/0019340

PATIENT
  Age: 52 Year
  Sex: Male

DRUGS (15)
  1. BUDESONIDE [Suspect]
     Active Substance: BUDESONIDE
     Indication: Eosinophilic oesophagitis
  2. BUDESONIDE [Suspect]
     Active Substance: BUDESONIDE
     Indication: Eosinophilic gastritis
  3. BUDESONIDE [Suspect]
     Active Substance: BUDESONIDE
     Indication: Gastroenteritis eosinophilic
  4. PANTOPRAZOLE [Concomitant]
     Active Substance: PANTOPRAZOLE
     Indication: Eosinophilic oesophagitis
  5. PANTOPRAZOLE [Concomitant]
     Active Substance: PANTOPRAZOLE
     Indication: Eosinophilic gastritis
  6. PANTOPRAZOLE [Concomitant]
     Active Substance: PANTOPRAZOLE
     Indication: Gastroenteritis eosinophilic
  7. FAMOTIDINE [Concomitant]
     Active Substance: FAMOTIDINE
     Indication: Eosinophilic oesophagitis
  8. FAMOTIDINE [Concomitant]
     Active Substance: FAMOTIDINE
     Indication: Eosinophilic gastritis
  9. FAMOTIDINE [Concomitant]
     Active Substance: FAMOTIDINE
     Indication: Gastroenteritis eosinophilic
  10. OMALIZUMAB [Concomitant]
     Active Substance: OMALIZUMAB
     Indication: Product used for unknown indication
  11. BENRALIZUMAB [Concomitant]
     Active Substance: BENRALIZUMAB
     Indication: Product used for unknown indication
  12. VEDOLIZUMAB [Concomitant]
     Active Substance: VEDOLIZUMAB
     Indication: Product used for unknown indication
  13. DUPILUMAB [Concomitant]
     Active Substance: DUPILUMAB
     Indication: Product used for unknown indication
  14. LIRENTELIMAB [Concomitant]
     Active Substance: LIRENTELIMAB
     Indication: Product used for unknown indication
  15. TOFACITINIB [Concomitant]
     Active Substance: TOFACITINIB
     Indication: Product used for unknown indication

REACTIONS (1)
  - Drug ineffective for unapproved indication [Unknown]
